FAERS Safety Report 10736558 (Version 1)
Quarter: 2015Q1

REPORT INFORMATION
  Report Type: Spontaneous
  Country: US (occurrence: None)
  Receive Date: 20150122
  Receipt Date: 20150122
  Transmission Date: 20150721
  Serious: Yes (Death)
  Sender: FDA-Public Use
  Company Number: 2015010158

PATIENT
  Age: 33 Year
  Sex: Female

DRUGS (9)
  1. PSEUDOEPHEDRINE (PSEUDOEPHEDRINE) [Suspect]
     Active Substance: PSEUDOEPHEDRINE
  2. ACETAMINOPHEN (ACETAMINOPHEN) [Suspect]
     Active Substance: ACETAMINOPHEN
  3. DIPHENHYDRAMINE (DIPHENHYDRAMINE) [Suspect]
     Active Substance: DIPHENHYDRAMINE
  4. PROMETHAZINE [Suspect]
     Active Substance: PROMETHAZINE\PROMETHAZINE HYDROCHLORIDE
  5. DEXTROMETHORPHAN (DEXTROMETHORPHAN) [Suspect]
     Active Substance: DEXTROMETHORPHAN
  6. METHADONE [Suspect]
     Active Substance: METHADONE HYDROCHLORIDE
  7. PHENYLPROPANOLAMINE [Suspect]
     Active Substance: PHENYLPROPANOLAMINE
  8. MEPROBAMATE. [Suspect]
     Active Substance: MEPROBAMATE
  9. HYDROXYZINE (HYDROXYZINE) [Suspect]
     Active Substance: HYDROXYZINE HYDROCHLORIDE

REACTIONS (1)
  - Death [None]

NARRATIVE: CASE EVENT DATE: 2013
